FAERS Safety Report 17540944 (Version 2)
Quarter: 2021Q2

REPORT INFORMATION
  Report Type: Report from Study
  Country: CA (occurrence: CA)
  Receive Date: 20200313
  Receipt Date: 20210609
  Transmission Date: 20210716
  Serious: Yes (Other)
  Sender: FDA-Public Use
  Company Number: CA-NALPROPION PHARMACEUTICALS INC.-2020-009871

PATIENT

DRUGS (8)
  1. PREDNISONE. [Concomitant]
     Active Substance: PREDNISONE
     Indication: CHRONIC OBSTRUCTIVE PULMONARY DISEASE
     Dosage: IF NEEDED
  2. CONTRAVE [Suspect]
     Active Substance: BUPROPION HYDROCHLORIDE\NALTREXONE HYDROCHLORIDE
     Dosage: 90/8 MG (1 DOSAGE FORMS, 1 IN 12 HR)
     Route: 048
     Dates: start: 20210308, end: 20210314
  3. CONTRAVE [Suspect]
     Active Substance: BUPROPION HYDROCHLORIDE\NALTREXONE HYDROCHLORIDE
     Dosage: 90/8 MG (2 DOSAGE FORMS, 1 IN 12 HR)
     Route: 048
     Dates: start: 20210322, end: 20210426
  4. CONTRAVE [Suspect]
     Active Substance: BUPROPION HYDROCHLORIDE\NALTREXONE HYDROCHLORIDE
     Dosage: 90/8 MG, 2 TABLET IN MORNING AND 1 TABLET IN EVENING
     Route: 048
     Dates: start: 20210315, end: 20210321
  5. CONTRAVE [Suspect]
     Active Substance: BUPROPION HYDROCHLORIDE\NALTREXONE HYDROCHLORIDE
     Indication: WEIGHT CONTROL
     Dosage: 90/8 MG; APPROXIMATELY 14/FEB/2020 TO APPROXIMATELY 20/FEB/2020 (1 DOSAGE FORMS, 1 IN 1 D)
     Route: 048
     Dates: start: 202002, end: 202002
  6. CONTRAVE [Suspect]
     Active Substance: BUPROPION HYDROCHLORIDE\NALTREXONE HYDROCHLORIDE
     Dosage: 90/8 MG; APPROXIMATELY 21/FEB/2020 TO APPROXIMATELY 27/FEB/2020 (1 DOSAGE FORMS, 1 IN 12 HR)
     Route: 048
     Dates: start: 202002, end: 202002
  7. CONTRAVE [Suspect]
     Active Substance: BUPROPION HYDROCHLORIDE\NALTREXONE HYDROCHLORIDE
     Dosage: 90/8 MG, APPROXIMATELY 28/FEB/2020
     Route: 048
     Dates: start: 202002, end: 202002
  8. CONTRAVE [Suspect]
     Active Substance: BUPROPION HYDROCHLORIDE\NALTREXONE HYDROCHLORIDE
     Dosage: 90/8 MG (1 DOSAGE FORMS, 1 IN 1 D)
     Route: 048
     Dates: start: 20210301, end: 20210307

REACTIONS (10)
  - Intentional product use issue [Unknown]
  - Haemorrhoids [Unknown]
  - Prolapse repair [Unknown]
  - Haematochezia [Recovering/Resolving]
  - Constipation [Recovered/Resolved]
  - Asthenia [Unknown]
  - Drug intolerance [Unknown]
  - Feeling abnormal [Not Recovered/Not Resolved]
  - Drug ineffective [Unknown]
  - Abdominal discomfort [Unknown]

NARRATIVE: CASE EVENT DATE: 2020
